FAERS Safety Report 5178824-5 (Version None)
Quarter: 2006Q4

REPORT INFORMATION
  Report Type: 
  Country: None (occurrence: None)
  Receive Date: 20061208
  Receipt Date: 20061125
  Transmission Date: 20070319
  Serious: Yes (Other)
  Sender: FDA-Public Use
  Company Number: A-CH2006-13338

PATIENT
  Age: 49 Year
  Sex: Male
  Weight: 66 kg

DRUGS (7)
  1. TRACLEER [Suspect]
     Indication: PULMONARY HYPERTENSION
     Dosage: SEE IMAGE
     Route: 048
     Dates: start: 20060601, end: 20060701
  2. TRACLEER [Suspect]
     Indication: PULMONARY HYPERTENSION
     Dosage: SEE IMAGE
     Route: 048
     Dates: start: 20060701, end: 20060806
  3. COUMADIN [Concomitant]
  4. LANOXIN [Concomitant]
  5. CORDARONE [Concomitant]
  6. ALLOPURINOL [Concomitant]
  7. LASITONE (SPIRONOLACTONE, FUROSEMIDE) [Concomitant]

REACTIONS (6)
  - ARTHRITIS [None]
  - C-REACTIVE PROTEIN INCREASED [None]
  - HYPERPYREXIA [None]
  - LYMPHOCYTE COUNT DECREASED [None]
  - NEUTROPHIL COUNT INCREASED [None]
  - OEDEMA PERIPHERAL [None]
